FAERS Safety Report 5877595-4 (Version None)
Quarter: 2008Q3

REPORT INFORMATION
  Report Type: 
  Country: None (occurrence: None)
  Receive Date: 20080911
  Receipt Date: 20080908
  Transmission Date: 20090109
  Serious: Yes (Other)
  Sender: FDA-Public Use
  Company Number: PHEH2008US07218

PATIENT

DRUGS (7)
  1. RECLAST [Suspect]
     Dosage: UNK, UNK
  2. BUSPAR [Concomitant]
     Dosage: UNK, UNK
  3. ASPIRIN [Concomitant]
     Dosage: UNK, UNK
  4. DIGOXIN [Concomitant]
     Dosage: UNK, UNK
  5. L-LYSINE [Concomitant]
     Dosage: UNK, UNK
  6. MULTI-VITAMINS [Concomitant]
     Dosage: UNK
  7. TRANXENE [Concomitant]
     Dosage: UNK, UNK

REACTIONS (2)
  - KLEBSIELLA INFECTION [None]
  - SKIN LESION [None]
